FAERS Safety Report 9657581 (Version 2)
Quarter: 2013Q4

REPORT INFORMATION
  Report Type: Spontaneous
  Country: US (occurrence: US)
  Receive Date: 20131030
  Receipt Date: 20131030
  Transmission Date: 20140711
  Serious: Yes (Death)
  Sender: FDA-Public Use
  Company Number: US-NAPPMUNDI-USA-2012-0080666

PATIENT
  Age: 16 Year
  Sex: Female
  Weight: 64.4 kg

DRUGS (5)
  1. OXYCONTIN TABLETS [Suspect]
     Indication: DRUG ABUSE
     Dosage: 20 MG, UNK
  2. XANAX [Suspect]
     Indication: DRUG ABUSE
  3. LORTAB /00607101/ [Suspect]
     Indication: DRUG ABUSE
  4. DIHYDROCODEINE [Suspect]
     Indication: PRODUCT USED FOR UNKNOWN INDICATION
  5. MARIJUANA [Suspect]
     Indication: SUBSTANCE ABUSE

REACTIONS (2)
  - Accidental overdose [Fatal]
  - Substance abuse [Fatal]
